FAERS Safety Report 6959127-2 (Version None)
Quarter: 2010Q3

REPORT INFORMATION
  Report Type: 
  Country: None (occurrence: None)
  Receive Date: 20100831
  Receipt Date: 20100818
  Transmission Date: 20110219
  Serious: Yes (Other)
  Sender: FDA-Public Use
  Company Number: US-ELI_LILLY_AND_COMPANY-US201007006762

PATIENT
  Sex: Female

DRUGS (4)
  1. FORTEO [Suspect]
     Indication: OSTEOPOROSIS
     Dosage: 20 UG, DAILY (1/D)
     Route: 065
     Dates: start: 20100501
  2. PROZAC [Concomitant]
     Dosage: 10 MG, UNK
  3. PHENERGAN [Concomitant]
     Dosage: UNK, AS NEEDED
  4. VICODIN [Concomitant]
     Dosage: UNK, AS NEEDED

REACTIONS (2)
  - BENIGN INTRACRANIAL HYPERTENSION [None]
  - SHUNT MALFUNCTION [None]
